FAERS Safety Report 10446552 (Version 1)
Quarter: 2014Q3

REPORT INFORMATION
  Report Type: Spontaneous
  Country: US (occurrence: US)
  Receive Date: 20140911
  Receipt Date: 20140911
  Transmission Date: 20150326
  Serious: Yes (Hospitalization)
  Sender: FDA-Public Use
  Company Number: US-AMGEN-USASP2014068468

PATIENT
  Age: 53 Year
  Sex: Female

DRUGS (1)
  1. ENBREL [Suspect]
     Active Substance: ETANERCEPT
     Indication: RHEUMATOID ARTHRITIS
     Dosage: 50 MG, QWK
     Route: 065
     Dates: start: 20140111, end: 20140503

REACTIONS (4)
  - Back pain [Not Recovered/Not Resolved]
  - Spinal operation [Recovered/Resolved]
  - Nerve compression [Recovered/Resolved]
  - Joint abscess [Recovered/Resolved]

NARRATIVE: CASE EVENT DATE: 2014
